FAERS Safety Report 6518136-8 (Version None)
Quarter: 2009Q4

REPORT INFORMATION
  Report Type: 
  Country: None (occurrence: None)
  Receive Date: 20091223
  Receipt Date: 20091223
  Transmission Date: 20100525
  Serious: Yes (Hospitalization)
  Sender: FDA-Public Use
  Company Number: None

PATIENT
  Age: 21 Year
  Sex: Male
  Weight: 53.0709 kg

DRUGS (2)
  1. TRAMADOL HCL [Suspect]
     Indication: BACK PAIN
     Dosage: 50-100 MG Q6 HOURS PO
     Route: 048
     Dates: start: 20091125, end: 20091214
  2. AMITRIPTYLINE HCL [Suspect]
     Dosage: 25 - 50 MG HS PO
     Route: 048

REACTIONS (1)
  - CONVULSION [None]
